FAERS Safety Report 4705403-3 (Version None)
Quarter: 2005Q3

REPORT INFORMATION
  Report Type: 
  Country: None (occurrence: None)
  Receive Date: 20050701
  Receipt Date: 20020130
  Transmission Date: 20060218
  Serious: Yes (Hospitalization)
  Sender: FDA-Public Use
  Company Number: FR-GLAXOSMITHKLINE-B0135106A

PATIENT
  Age: 1 Day
  Sex: Male
  Weight: 3.2 kg

DRUGS (11)
  1. RETROVIR [Suspect]
     Indication: HIV INFECTION
     Dates: start: 20000602, end: 20000602
  2. EPIVIR [Suspect]
     Indication: HIV INFECTION
     Dosage: 150MG TWICE PER DAY
  3. ZERIT [Suspect]
     Indication: ANTIVIRAL PROPHYLAXIS
     Route: 048
     Dates: start: 20000602
  4. VIRAMUNE [Suspect]
     Indication: ANTIVIRAL PROPHYLAXIS
     Dosage: 1UNIT PER DAY
     Route: 048
     Dates: start: 20000603, end: 20000603
  5. VIRAMUNE [Suspect]
     Indication: HIV INFECTION
  6. ZERIT [Suspect]
     Indication: HIV INFECTION
     Dosage: 30MG TWICE PER DAY
  7. ERCEFURYL [Concomitant]
  8. IRON [Concomitant]
  9. SPASFON [Concomitant]
  10. TRIFLUCAN [Concomitant]
  11. VITAMINS [Concomitant]

REACTIONS (11)
  - ANAEMIA [None]
  - BLOOD KETONE BODY INCREASED [None]
  - BLOOD KETONE BODY PRESENT [None]
  - BLOOD LACTIC ACID INCREASED [None]
  - CONSTIPATION [None]
  - DRUG EXPOSURE DURING PREGNANCY [None]
  - HYPERTRIGLYCERIDAEMIA [None]
  - LABORATORY TEST ABNORMAL [None]
  - MACROCYTOSIS [None]
  - METABOLIC DISORDER [None]
  - STOMATITIS [None]
